FAERS Safety Report 7829965-2 (Version None)
Quarter: 2011Q4

REPORT INFORMATION
  Report Type: 
  Country: None (occurrence: None)
  Receive Date: 20111021
  Receipt Date: 20111003
  Transmission Date: 20120403
  Serious: Yes (Other)
  Sender: FDA-Public Use
  Company Number: US-BAYER-2011-094499

PATIENT
  Age: 33 Year
  Sex: Female

DRUGS (2)
  1. DROSPIRENONE AND ETHINYL ESTRADIOL [Suspect]
     Dosage: UNK
     Dates: start: 20040101, end: 20091101
  2. YASMIN [Suspect]
     Dosage: UNK
     Dates: start: 20040101, end: 20091101

REACTIONS (2)
  - GALLBLADDER DISORDER [None]
  - INJURY [None]
